FAERS Safety Report 7091372-0 (Version None)
Quarter: 2010Q4

REPORT INFORMATION
  Report Type: 
  Country: None (occurrence: None)
  Receive Date: 20101105
  Receipt Date: 20101105
  Transmission Date: 20110411
  Serious: Yes (Hospitalization, Other)
  Sender: FDA-Public Use
  Company Number: None

PATIENT
  Age: 37 Year
  Sex: Female
  Weight: 80.7403 kg

DRUGS (4)
  1. ADDERALL 20 [Suspect]
     Indication: ATTENTION DEFICIT/HYPERACTIVITY DISORDER
     Dosage: 20 MG BID PO
     Route: 048
     Dates: start: 20080101
  2. ADDERALL 20 [Suspect]
     Indication: DEPRESSION
     Dosage: 20 MG BID PO
     Route: 048
     Dates: start: 20080101
  3. ZOLOFT [Suspect]
     Indication: ATTENTION DEFICIT/HYPERACTIVITY DISORDER
     Dosage: 100MG QD PO
     Route: 048
     Dates: start: 20080101
  4. ZOLOFT [Suspect]
     Indication: DEPRESSION
     Dosage: 100MG QD PO
     Route: 048
     Dates: start: 20080101

REACTIONS (4)
  - CEREBROVASCULAR ACCIDENT [None]
  - DRUG WITHDRAWAL SYNDROME [None]
  - SEROTONIN SYNDROME [None]
  - TARDIVE DYSKINESIA [None]
